FAERS Safety Report 26194876 (Version 2)
Quarter: 2025Q4

REPORT INFORMATION
  Report Type: Spontaneous
  Country: BR (occurrence: BR)
  Receive Date: 20251224
  Receipt Date: 20251229
  Transmission Date: 20260117
  Serious: No
  Sender: JOHNSON AND JOHNSON
  Company Number: BR-JNJFOC-20251225615

PATIENT
  Age: 69 Year
  Sex: Male
  Weight: 77 kg

DRUGS (2)
  1. STELARA [Suspect]
     Active Substance: USTEKINUMAB
     Indication: Psoriasis
     Dosage: STRENGTH: 45.00 MG / 0.50 ML
     Route: 058
     Dates: start: 202401
  2. STELARA [Suspect]
     Active Substance: USTEKINUMAB
     Indication: Rheumatic disorder

REACTIONS (7)
  - Device defective [Unknown]
  - Syringe issue [Unknown]
  - Product dose omission issue [Unknown]
  - Psoriasis [Unknown]
  - Pain [Unknown]
  - Therapeutic product effect incomplete [Unknown]
  - Arthralgia [Unknown]

NARRATIVE: CASE EVENT DATE: 20251217
